FAERS Safety Report 6667554-6 (Version None)
Quarter: 2010Q2

REPORT INFORMATION
  Report Type: 
  Country: None (occurrence: None)
  Receive Date: 20100405
  Receipt Date: 20100325
  Transmission Date: 20101027
  Serious: Yes (Other)
  Sender: FDA-Public Use
  Company Number: PT-JNJFOC-20090602171

PATIENT
  Sex: Female

DRUGS (2)
  1. REMICADE [Suspect]
     Indication: CROHN'S DISEASE
     Route: 042
  2. METHYLPREDNISOLONE [Concomitant]
     Dosage: 4 OR 8 MG

REACTIONS (3)
  - DRUG INEFFECTIVE [None]
  - MIXED CONNECTIVE TISSUE DISEASE [None]
  - TRANSAMINASES INCREASED [None]
